FAERS Safety Report 7413870-X (Version None)
Quarter: 2011Q2

REPORT INFORMATION
  Report Type: 
  Country: None (occurrence: None)
  Receive Date: 20110414
  Receipt Date: 20110406
  Transmission Date: 20111010
  Serious: Yes (Other)
  Sender: FDA-Public Use
  Company Number: FI-AMGEN-FINSP2011019007

PATIENT
  Age: 33 Year
  Sex: Female
  Weight: 65 kg

DRUGS (4)
  1. PREDNISOLON                        /00016201/ [Concomitant]
     Dosage: 5 MG, 1X/DAY
  2. ENBREL [Suspect]
     Indication: RHEUMATOID ARTHRITIS
     Dosage: 50 MG, WEEKLY
     Route: 058
     Dates: end: 20110101
  3. KLEXANE                            /00889602/ [Concomitant]
     Indication: THROMBOSIS PROPHYLAXIS
     Dosage: 40 MG, 1X/DAY
     Route: 058
     Dates: start: 20101105, end: 20110213
  4. PANADOL                            /00020001/ [Concomitant]
     Indication: PAIN
     Dosage: 500 MG, AS NEEDED

REACTIONS (3)
  - RHEUMATOID ARTHRITIS [None]
  - PROTEIN URINE PRESENT [None]
  - HYPERTENSION [None]
